FAERS Safety Report 13251048 (Version 1)
Quarter: 2017Q1

REPORT INFORMATION
  Report Type: Spontaneous
  Country: US (occurrence: US)
  Receive Date: 20170220
  Receipt Date: 20170220
  Transmission Date: 20170428
  Serious: No
  Sender: FDA-Public Use
  Company Number: US-TEVA-702922USA

PATIENT
  Age: 81 Year
  Sex: Male
  Weight: 61.29 kg

DRUGS (1)
  1. CLOTRIMAZOLE. [Suspect]
     Active Substance: CLOTRIMAZOLE
     Indication: FUNGAL INFECTION
     Dosage: 1%
     Dates: start: 20160914

REACTIONS (2)
  - Incorrect route of drug administration [Unknown]
  - Therapeutic response unexpected [Unknown]
